FAERS Safety Report 7283865-8 (Version None)
Quarter: 2011Q1

REPORT INFORMATION
  Report Type: 
  Country: None (occurrence: None)
  Receive Date: 20110209
  Receipt Date: 20110202
  Transmission Date: 20110831
  Serious: Yes (Death, Other)
  Sender: FDA-Public Use
  Company Number: FR-PFIZER INC-2011023716

PATIENT
  Age: 20 Month
  Sex: Male
  Weight: 10 kg

DRUGS (25)
  1. SEVOFLURANE [Suspect]
     Dosage: UNK
     Route: 055
     Dates: start: 20101223, end: 20101223
  2. HYPNOVEL [Suspect]
     Indication: ANAESTHESIA
     Dosage: 5 MG
     Dates: start: 20101223, end: 20101223
  3. ATRACURIUM BESILATE [Suspect]
     Dosage: 5 MG
     Route: 042
     Dates: start: 20101223, end: 20101223
  4. MORPHINE [Suspect]
     Dosage: 80 A?G/KG/H
  5. SIMULECT [Suspect]
     Indication: PROPHYLAXIS
     Dosage: 10 MG, SINGLE
     Route: 042
     Dates: start: 20101223, end: 20101223
  6. ADRENALINE [Suspect]
     Dosage: 200 A?G
     Route: 042
     Dates: start: 20101223, end: 20101224
  7. CALCIPARINE [Suspect]
     Dosage: UNK
     Route: 058
     Dates: start: 20101223, end: 20101223
  8. CELLCEPT [Suspect]
     Dosage: 280 MG
     Route: 042
     Dates: start: 20101223, end: 20101224
  9. PARACETAMOL [Suspect]
     Dosage: 200 MG
     Route: 042
     Dates: start: 20101223, end: 20101224
  10. VENTOLIN [Suspect]
     Dosage: UNK
     Dates: start: 20101223, end: 20101223
  11. KETAMINE [Suspect]
     Dosage: 20 MG
     Route: 042
     Dates: start: 20101224, end: 20101224
  12. ALBUMIN HUMAN [Suspect]
     Dosage: 40MG/ML
     Route: 042
     Dates: start: 20101223, end: 20101223
  13. MORPHINE [Suspect]
     Dosage: 31 A?G/KG/H
     Route: 042
     Dates: start: 20101223
  14. SUFENTA PRESERVATIVE FREE [Suspect]
     Indication: ANAESTHESIA
     Dosage: 5 A?G
     Dates: start: 20101223, end: 20101223
  15. ROCEPHIN [Suspect]
     Dosage: 500 MG/2 ML
     Route: 042
     Dates: start: 20101223
  16. BACTRIM [Suspect]
     Dosage: UNK
     Route: 042
     Dates: start: 20101223
  17. ATROPINE [Suspect]
     Dosage: 200 A?G
     Route: 042
     Dates: start: 20101223, end: 20101223
  18. ALBUMIN HUMAN [Suspect]
     Dosage: UNK
     Dates: start: 20101224
  19. METRONIDAZOLE [Suspect]
     Dosage: 30 MG/KG/DAY
     Route: 042
     Dates: start: 20101224
  20. SOLU-MEDROL [Suspect]
     Dosage: 140 MG
     Route: 042
     Dates: start: 20101223, end: 20101223
  21. HYPNOVEL [Suspect]
     Dosage: 200 A?G/KG/H
  22. NORADRENALINE [Suspect]
     Dosage: 2 MG
     Route: 042
     Dates: start: 20101223, end: 20101224
  23. LASIX [Suspect]
     Dosage: 10 MG, 2X/DAY
     Dates: start: 20101223, end: 20101223
  24. NEXIUM [Suspect]
     Dosage: 20 MG
     Route: 042
     Dates: start: 20101223, end: 20101223
  25. COROTROPE [Suspect]
     Dosage: 0.4 A?K/KG/MIN
     Route: 042
     Dates: start: 20101224

REACTIONS (16)
  - ACUTE PULMONARY OEDEMA [None]
  - PLEURAL EFFUSION [None]
  - HAEMOGLOBIN DECREASED [None]
  - ALVEOLITIS [None]
  - ELECTROCARDIOGRAM QRS COMPLEX PROLONGED [None]
  - ARRHYTHMIA [None]
  - CARDIAC FAILURE [None]
  - BRADYCARDIA [None]
  - HAEMODYNAMIC INSTABILITY [None]
  - RESPIRATORY FAILURE [None]
  - PURULENCE [None]
  - GASTROINTESTINAL HAEMORRHAGE [None]
  - PYREXIA [None]
  - RENAL TRANSPLANT [None]
  - AGITATION POSTOPERATIVE [None]
  - SPLENOMEGALY [None]
